FAERS Safety Report 13878065 (Version 1)
Quarter: 2017Q3

REPORT INFORMATION
  Report Type: Spontaneous
  Country: AU (occurrence: AU)
  Receive Date: 20170817
  Receipt Date: 20170817
  Transmission Date: 20171127
  Serious: Yes (Other)
  Sender: FDA-Public Use
  Company Number: AU-SA-2017SA142749

PATIENT
  Sex: Female

DRUGS (1)
  1. AUBAGIO [Suspect]
     Active Substance: TERIFLUNOMIDE
     Route: 048

REACTIONS (4)
  - Biopsy bone marrow abnormal [Unknown]
  - Back pain [Unknown]
  - Monocyte count decreased [Unknown]
  - Acute lymphocytic leukaemia [Unknown]
